FAERS Safety Report 4330553-3 (Version None)
Quarter: 2004Q2

REPORT INFORMATION
  Report Type: 
  Country: None (occurrence: None)
  Receive Date: 20040402
  Receipt Date: 20040324
  Transmission Date: 20050107
  Serious: Yes (Hospitalization)
  Sender: FDA-Public Use
  Company Number: PHEH2004US03493

PATIENT
  Sex: Female

DRUGS (1)
  1. ZELNORM [Suspect]
     Indication: IRRITABLE BOWEL SYNDROME
     Route: 048

REACTIONS (5)
  - ABDOMINAL PAIN [None]
  - BLOOD AMYLASE INCREASED [None]
  - CHOLELITHIASIS [None]
  - LIPASE INCREASED [None]
  - PANCREATITIS [None]
